FAERS Safety Report 7220300-X (Version None)
Quarter: 2011Q1

REPORT INFORMATION
  Report Type: 
  Country: None (occurrence: None)
  Receive Date: 20110111
  Receipt Date: 20110103
  Transmission Date: 20110831
  Serious: Yes (Other)
  Sender: FDA-Public Use
  Company Number: BE-JNJFOC-20101102769

PATIENT
  Age: 14 Year
  Sex: Male

DRUGS (2)
  1. REMICADE [Suspect]
     Indication: CROHN'S DISEASE
     Dosage: 7 INFUSIONS
     Route: 042
  2. REMICADE [Suspect]
     Dosage: 7 INFUSIONS
     Route: 042

REACTIONS (2)
  - HEPATIC STEATOSIS [None]
  - CYTOLYTIC HEPATITIS [None]
